FAERS Safety Report 6361849-1 (Version None)
Quarter: 2009Q3

REPORT INFORMATION
  Report Type: 
  Country: None (occurrence: None)
  Receive Date: 20090918
  Receipt Date: 20090910
  Transmission Date: 20100115
  Serious: Yes (Hospitalization, Other)
  Sender: FDA-Public Use
  Company Number: US-ABBOTT-09P-163-0596724-00

PATIENT
  Sex: Male
  Weight: 94.432 kg

DRUGS (5)
  1. SYNTHROID [Suspect]
     Indication: HYPOTHYROIDISM
     Dates: start: 20051001, end: 20070601
  2. SYNTHROID [Suspect]
     Route: 048
     Dates: start: 20080301, end: 20090401
  3. LEVOTHYROXINE SODIUM [Suspect]
     Indication: HYPOTHYROIDISM
     Route: 048
     Dates: end: 20050101
  4. LEVOTHYROXINE SODIUM [Suspect]
     Route: 048
     Dates: start: 20071001, end: 20080301
  5. VITAMINS [Concomitant]
     Indication: VITAMIN SUPPLEMENTATION

REACTIONS (17)
  - ASTHENIA [None]
  - AUTOIMMUNE THYROIDITIS [None]
  - BLOOD TESTOSTERONE DECREASED [None]
  - BLOOD THYROID STIMULATING HORMONE ABNORMAL [None]
  - BONE PAIN [None]
  - CARDIAC ENZYMES INCREASED [None]
  - CHEST DISCOMFORT [None]
  - CIRCULATORY COLLAPSE [None]
  - CONSTIPATION [None]
  - DYSPNOEA [None]
  - HEADACHE [None]
  - MUSCLE TIGHTNESS [None]
  - NASAL CONGESTION [None]
  - SINUSITIS [None]
  - SLEEP APNOEA SYNDROME [None]
  - SNORING [None]
  - TESTICULAR PAIN [None]
